FAERS Safety Report 12861177 (Version 1)
Quarter: 2016Q4

REPORT INFORMATION
  Report Type: Report from Study
  Country: GB (occurrence: GB)
  Receive Date: 20161019
  Receipt Date: 20161019
  Transmission Date: 20170207
  Serious: Yes (Hospitalization)
  Sender: FDA-Public Use
  Company Number: GB-TEVA-703584ACC

PATIENT
  Age: 71 Year
  Sex: Male
  Weight: 125.19 kg

DRUGS (36)
  1. WARFARIN [Suspect]
     Active Substance: WARFARIN
     Route: 065
     Dates: start: 20160217, end: 20160522
  2. OXYCODONE [Concomitant]
     Active Substance: OXYCODONE
     Indication: BACK PAIN
     Dosage: 5/325MG
     Route: 048
     Dates: start: 2009
  3. DIAZEPAM. [Concomitant]
     Active Substance: DIAZEPAM
     Dosage: WHEN REQUIRED
  4. XARELTO [Concomitant]
     Active Substance: RIVAROXABAN
     Dates: start: 20160225, end: 20160225
  5. ATORVASTATIN [Concomitant]
     Active Substance: ATORVASTATIN
     Dosage: 80 MILLIGRAM DAILY;
     Route: 048
     Dates: start: 20160510
  6. DILTIAZEM. [Concomitant]
     Active Substance: DILTIAZEM
     Dosage: 960 MILLIGRAM DAILY;
     Route: 048
     Dates: start: 20160419
  7. AMIODARONE [Concomitant]
     Active Substance: AMIODARONE
     Dosage: AS REQUIRED
     Route: 042
     Dates: start: 20160527, end: 20160529
  8. WARFARIN [Suspect]
     Active Substance: WARFARIN
     Indication: ANTICOAGULANT THERAPY
     Route: 065
     Dates: start: 20160217, end: 20160522
  9. ASA [Concomitant]
     Active Substance: ASPIRIN
     Indication: ISCHAEMIC HEART DISEASE PROPHYLAXIS
     Dosage: 325 MILLIGRAM DAILY;
     Route: 048
     Dates: start: 2011, end: 20160527
  10. VASELINE PURE [Concomitant]
     Active Substance: PETROLATUM
     Indication: RASH
     Route: 061
     Dates: start: 2005
  11. DIAZEPAM. [Concomitant]
     Active Substance: DIAZEPAM
     Indication: ANXIETY
     Dosage: 2 MILLIGRAM DAILY;
     Route: 048
     Dates: start: 20160118
  12. XARELTO [Concomitant]
     Active Substance: RIVAROXABAN
     Dates: start: 20151102, end: 20160216
  13. PEPCID [Concomitant]
     Active Substance: FAMOTIDINE
     Indication: GASTROOESOPHAGEAL REFLUX DISEASE
     Dosage: 40 MILLIGRAM DAILY;
     Route: 042
     Dates: start: 20160527, end: 20160531
  14. NITROSTAT [Concomitant]
     Active Substance: NITROGLYCERIN
     Route: 048
     Dates: start: 20160518
  15. FLONASE [Concomitant]
     Active Substance: FLUTICASONE PROPIONATE
     Indication: SEASONAL ALLERGY
     Dosage: WHEN REQUIRED
     Route: 055
     Dates: start: 201511
  16. QUINAPRIL. [Concomitant]
     Active Substance: QUINAPRIL
     Dates: start: 20160510
  17. PANTOPRAZOLE [Concomitant]
     Active Substance: PANTOPRAZOLE SODIUM
     Indication: GASTROOESOPHAGEAL REFLUX DISEASE
     Dosage: 40 MILLIGRAM DAILY;
     Route: 048
     Dates: start: 2009, end: 20160527
  18. FUROSEMIDE. [Concomitant]
     Active Substance: FUROSEMIDE
     Indication: PRODUCT USED FOR UNKNOWN INDICATION
     Dosage: 80 MILLIGRAM DAILY;
     Route: 065
     Dates: start: 20160323
  19. WARFARIN [Suspect]
     Active Substance: WARFARIN
     Route: 065
     Dates: start: 20160217, end: 20160522
  20. NITROSTAT [Concomitant]
     Active Substance: NITROGLYCERIN
     Indication: CHEST PAIN
     Dosage: .4 MILLIGRAM DAILY;
     Route: 060
     Dates: start: 20150617
  21. LASIX [Concomitant]
     Active Substance: FUROSEMIDE
     Indication: OEDEMA
     Dosage: 40 MILLIGRAM DAILY;
     Route: 048
     Dates: start: 20160330
  22. AMIODARONE [Concomitant]
     Active Substance: AMIODARONE
     Indication: ERYTHEMA
     Dosage: 800 MILLIGRAM DAILY;
     Route: 048
     Dates: start: 20160225, end: 20160229
  23. AMIODARONE [Concomitant]
     Active Substance: AMIODARONE
     Dosage: 400 MILLIGRAM DAILY;
     Route: 048
     Dates: start: 20160301
  24. SALINE (ACTILYSE) [Concomitant]
     Indication: DEHYDRATION
     Dosage: 100CC HOUR
     Route: 042
     Dates: start: 20160527, end: 20160531
  25. VITAMIN K [Concomitant]
     Active Substance: PHYTONADIONE
     Indication: NUTRITIONAL SUPPLEMENTATION
     Dosage: 2.5 MILLIGRAM DAILY;
     Route: 048
     Dates: start: 20160527, end: 20160527
  26. TIZANIDINE. [Concomitant]
     Active Substance: TIZANIDINE
     Route: 048
     Dates: start: 20160422
  27. QUINAPRIL. [Concomitant]
     Active Substance: QUINAPRIL
     Indication: HYPERTENSION
     Dosage: 40 MILLIGRAM DAILY;
     Route: 048
     Dates: start: 2009
  28. POTASSIUM [Concomitant]
     Active Substance: POTASSIUM
     Indication: NUTRITIONAL SUPPLEMENTATION
     Dosage: 40 MILLIEQUIVALENTS DAILY;
     Route: 048
     Dates: start: 20160513
  29. XARELTO [Concomitant]
     Active Substance: RIVAROXABAN
     Indication: ATRIAL FIBRILLATION
     Dosage: 15 MILLIGRAM DAILY;
     Route: 048
     Dates: start: 20160523, end: 20160527
  30. ATORVASTATIN [Concomitant]
     Active Substance: ATORVASTATIN
     Indication: HYPERLIPIDAEMIA
     Dosage: 20 MILLIGRAM DAILY;
     Route: 048
     Dates: start: 20150617, end: 20160527
  31. TIZANIDINE. [Concomitant]
     Active Substance: TIZANIDINE
     Indication: LIGAMENT SPRAIN
     Dosage: 4 MILLIGRAM DAILY;
     Route: 048
     Dates: start: 2011
  32. VITAMIN D2 [Concomitant]
     Active Substance: ERGOCALCIFEROL
     Indication: VITAMIN D DEFICIENCY
     Route: 048
     Dates: start: 20160527
  33. DILTIAZEM. [Concomitant]
     Active Substance: DILTIAZEM
     Indication: HYPERTENSION
     Dosage: 240 MILLIGRAM DAILY;
     Route: 048
     Dates: start: 2009
  34. XARELTO [Concomitant]
     Active Substance: RIVAROXABAN
     Route: 048
     Dates: start: 20160212
  35. HYDROCODON [Concomitant]
     Active Substance: HYDROCODONE
     Indication: PRODUCT USED FOR UNKNOWN INDICATION
     Dosage: 7.5-325
     Route: 065
     Dates: start: 20160216
  36. SODIUM CHLORIDE. [Concomitant]
     Active Substance: SODIUM CHLORIDE
     Dosage: 10 MILLIGRAM DAILY; 0.9%
     Route: 042
     Dates: start: 20160527, end: 20160531

REACTIONS (4)
  - Dyspnoea [Recovered/Resolved]
  - Anaemia [Recovered/Resolved]
  - Gastrointestinal haemorrhage [Recovered/Resolved]
  - Polyp [Recovered/Resolved]

NARRATIVE: CASE EVENT DATE: 20160527
